FAERS Safety Report 9573594 (Version 2)
Quarter: 2013Q4

REPORT INFORMATION
  Report Type: Spontaneous
  Country: US (occurrence: US)
  Receive Date: 20131001
  Receipt Date: 20131017
  Transmission Date: 20140711
  Serious: No
  Sender: FDA-Public Use
  Company Number: US-PFIZER INC-2013277773

PATIENT
  Age: 60 Year
  Sex: Female
  Weight: 68.03 kg

DRUGS (3)
  1. CELEBREX [Suspect]
     Indication: ARTHRITIS
     Dosage: 200 MG, 1X/DAY
     Route: 048
     Dates: end: 2013
  2. CELEBREX [Suspect]
     Indication: FIBROMYALGIA
     Dosage: 200 MG, 1X/DAY
     Route: 048
     Dates: start: 2013
  3. SOMA [Concomitant]
     Indication: MUSCLE SPASMS
     Dosage: UNK

REACTIONS (15)
  - Off label use [Unknown]
  - Pain [Unknown]
  - Pain [Unknown]
  - Arthralgia [Unknown]
  - Arthralgia [Unknown]
  - Arthralgia [Unknown]
  - Pain in extremity [Unknown]
  - Pain in extremity [Unknown]
  - Discomfort [Unknown]
  - Gait disturbance [Unknown]
  - Crying [Unknown]
  - Gait disturbance [Unknown]
  - Bedridden [Unknown]
  - Myalgia [Unknown]
  - Impaired work ability [Unknown]
